FAERS Safety Report 10970740 (Version 1)
Quarter: 2015Q1

REPORT INFORMATION
  Report Type: Spontaneous
  Country: None (occurrence: None)
  Receive Date: 20150226
  Receipt Date: 20150226
  Transmission Date: 20150721
  Serious: No
  Sender: FDA-Public Use
  Company Number: TPA2010A00654

PATIENT
  Sex: Male

DRUGS (5)
  1. COREG [Concomitant]
     Active Substance: CARVEDILOL
  2. ALDACTONE [Concomitant]
     Active Substance: SPIRONOLACTONE
  3. ULORIC [Suspect]
     Active Substance: FEBUXOSTAT
     Indication: GOUT
     Route: 048
     Dates: start: 20100113
  4. LASIX [Concomitant]
     Active Substance: FUROSEMIDE
  5. LISINOPRIL (LISINOPRIL) [Concomitant]
     Active Substance: LISINOPRIL

REACTIONS (1)
  - Gout [None]

NARRATIVE: CASE EVENT DATE: 200912
